FAERS Safety Report 23707986 (Version 1)
Quarter: 2024Q2

REPORT INFORMATION
  Report Type: Spontaneous
  Country: AU (occurrence: AU)
  Receive Date: 20240404
  Receipt Date: 20240404
  Transmission Date: 20240716
  Serious: Yes (Other)
  Sender: FDA-Public Use
  Company Number: AU-BAXTER-2024BAX015933

PATIENT
  Sex: Male

DRUGS (7)
  1. DOXORUBICIN [Suspect]
     Active Substance: DOXORUBICIN
     Indication: Marginal zone lymphoma stage IV
     Dosage: UNK, AS A PART OF RCHOP X 6 WITH CR1
     Route: 065
  2. CYCLOPHOSPHAMIDE [Suspect]
     Active Substance: CYCLOPHOSPHAMIDE
     Indication: Marginal zone lymphoma stage IV
     Dosage: UNK, AS A PART OF RCHOP X 6 WITH CR1
     Route: 065
  3. PREDNISONE [Suspect]
     Active Substance: PREDNISONE
     Indication: Marginal zone lymphoma stage IV
     Dosage: UNK, AS A PART OF RCHOP X 6 WITH CR1
     Route: 065
  4. RITUXIMAB [Suspect]
     Active Substance: RITUXIMAB
     Indication: Marginal zone lymphoma stage IV
     Dosage: UNK, COMBINED WITH BENDAMUSTINE
     Route: 065
  5. RITUXIMAB [Suspect]
     Active Substance: RITUXIMAB
     Dosage: UNK, AS A PART OF RCHOP X 6 WITH CR1
     Route: 065
  6. VINCRISTINE [Suspect]
     Active Substance: VINCRISTINE
     Indication: Marginal zone lymphoma stage IV
     Dosage: UNK, AS A PART OF RCHOP X 6 WITH CR1
     Route: 065
  7. BENDAMUSTINE [Suspect]
     Active Substance: BENDAMUSTINE
     Indication: Marginal zone lymphoma stage IV
     Dosage: UNK, COMBINED WITH RITUXIMAB
     Route: 065

REACTIONS (3)
  - Marginal zone lymphoma recurrent [Unknown]
  - Monoclonal immunoglobulin [Unknown]
  - Fatigue [Unknown]
